FAERS Safety Report 15648671 (Version 1)
Quarter: 2018Q4

REPORT INFORMATION
  Report Type: Spontaneous
  Country: US (occurrence: US)
  Receive Date: 20181122
  Receipt Date: 20181122
  Transmission Date: 20190205
  Serious: Yes (Hospitalization)
  Sender: FDA-Public Use
  Company Number: US-TEVA-2018-US-979568

PATIENT
  Age: 17 Month
  Sex: Male

DRUGS (3)
  1. FENTANYL. [Suspect]
     Active Substance: FENTANYL
     Route: 065
  2. OXYCODONE [Suspect]
     Active Substance: OXYCODONE
     Route: 065
  3. MORPHINE [Suspect]
     Active Substance: MORPHINE
     Route: 065

REACTIONS (11)
  - Lethargy [Unknown]
  - Exposure via breast milk [Unknown]
  - Agitation [Unknown]
  - Confusional state [Unknown]
  - Respiratory depression [Unknown]
  - Acidosis [Unknown]
  - Hyperglycaemia [Unknown]
  - Tachycardia [Unknown]
  - Somnolence [Unknown]
  - Irritability [Unknown]
  - Miosis [Unknown]
